FAERS Safety Report 5850241-1 (Version None)
Quarter: 2008Q3

REPORT INFORMATION
  Report Type: 
  Country: None (occurrence: None)
  Receive Date: 20080819
  Receipt Date: 20080811
  Transmission Date: 20090109
  Serious: Yes (Other)
  Sender: FDA-Public Use
  Company Number: PHHY2008CA18135

PATIENT
  Age: 62 Year
  Sex: Male

DRUGS (4)
  1. RASILEZ [Suspect]
  2. ACE INHIBITOR NOS [Concomitant]
  3. RENIN-ANGIOTENSIN SYSTEM, AGENTS ACTING ON [Concomitant]
  4. ANGIOTENSIN CONVERTING ENZYME BLOCKERS [Concomitant]

REACTIONS (2)
  - SPEECH DISORDER [None]
  - SWOLLEN TONGUE [None]
